FAERS Safety Report 5646513-6 (Version None)
Quarter: 2008Q1

REPORT INFORMATION
  Report Type: 
  Country: None (occurrence: None)
  Receive Date: 20080228
  Receipt Date: 20080228
  Transmission Date: 20080703
  Serious: Yes (Hospitalization)
  Sender: FDA-Public Use
  Company Number: None

PATIENT
  Sex: Male
  Weight: 97.5234 kg

DRUGS (8)
  1. AVELOX [Suspect]
     Indication: UPPER RESPIRATORY TRACT INFECTION
     Dosage: PO  (THERAPY DATES: PRIOR TO ADMISSION)
     Route: 048
  2. ACTOS [Concomitant]
  3. ALTACE [Concomitant]
  4. TOPROL [Concomitant]
  5. LIPITOR [Concomitant]
  6. EFFEXOR [Concomitant]
  7. AMBIEN [Concomitant]
  8. LORAZEPAM [Concomitant]

REACTIONS (1)
  - UNEVALUABLE EVENT [None]
